FAERS Safety Report 9195999 (Version 3)
Quarter: 2013Q2

REPORT INFORMATION
  Report Type: Report from Study
  Country: AU (occurrence: AU)
  Receive Date: 20130328
  Receipt Date: 20130520
  Transmission Date: 20140414
  Serious: Yes (Hospitalization, Other)
  Sender: FDA-Public Use
  Company Number: PHHY2013AU028852

PATIENT
  Age: 43 Year
  Sex: Female

DRUGS (3)
  1. CLOZARIL [Suspect]
     Indication: SCHIZOPHRENIA
     Dosage: 300 MG, DAILY
     Route: 048
     Dates: start: 2008, end: 20130307
  2. CLOZARIL [Suspect]
     Dosage: 200 UNK, UNK
  3. THYROXINE [Concomitant]
     Indication: HYPOTHYROIDISM
     Dosage: 50 MG, DAILY
     Route: 048

REACTIONS (10)
  - Affect lability [Recovering/Resolving]
  - Anosognosia [Recovering/Resolving]
  - Delusion [Recovering/Resolving]
  - Viral infection [Unknown]
  - White blood cell count decreased [Not Recovered/Not Resolved]
  - Neutropenia [Recovered/Resolved]
  - Type 2 diabetes mellitus [Unknown]
  - Upper respiratory tract infection [Unknown]
  - Sedation [Unknown]
  - Weight increased [Unknown]
